FAERS Safety Report 14602937 (Version 1)
Quarter: 2018Q1

REPORT INFORMATION
  Report Type: Spontaneous
  Country: ZA (occurrence: ZA)
  Receive Date: 20180306
  Receipt Date: 20180306
  Transmission Date: 20180509
  Serious: Yes (Hospitalization)
  Sender: FDA-Public Use
  Company Number: ZA-ABBVIE-18S-143-2271421-00

PATIENT
  Sex: Male
  Weight: 1.4 kg

DRUGS (2)
  1. SURVANTA [Suspect]
     Active Substance: BERACTANT
     Indication: PRODUCT USED FOR UNKNOWN INDICATION
     Route: 042
  2. SURVANTA [Suspect]
     Active Substance: BERACTANT
     Route: 039

REACTIONS (1)
  - Incorrect route of drug administration [Unknown]
